FAERS Safety Report 22156543 (Version 1)
Quarter: 2023Q1

REPORT INFORMATION
  Report Type: Spontaneous
  Country: CA (occurrence: CA)
  Receive Date: 20230330
  Receipt Date: 20230330
  Transmission Date: 20230417
  Serious: Yes (Other)
  Sender: FDA-Public Use
  Company Number: CA-002147023-NVSC2023CA067138

PATIENT
  Age: 36 Year
  Sex: Female

DRUGS (1)
  1. ERELZI [Suspect]
     Active Substance: ETANERCEPT-SZZS
     Indication: Rheumatoid arthritis
     Dosage: 50 MG, QW
     Route: 065

REACTIONS (4)
  - COVID-19 [Recovered/Resolved]
  - Hand-foot-and-mouth disease [Recovered/Resolved]
  - Immunosuppression [Recovered/Resolved]
  - Rheumatoid arthritis [Recovered/Resolved]
